FAERS Safety Report 5510704-5 (Version None)
Quarter: 2007Q4

REPORT INFORMATION
  Report Type: 
  Country: None (occurrence: None)
  Receive Date: 20071108
  Receipt Date: 20071101
  Transmission Date: 20080405
  Serious: Yes (Other)
  Sender: FDA-Public Use
  Company Number: A0681861A

PATIENT
  Age: 81 Year
  Sex: Female

DRUGS (2)
  1. COREG CR [Suspect]
     Indication: HYPERTENSION
     Dosage: 20MG PER DAY
     Route: 048
     Dates: start: 20070829, end: 20070926
  2. OSCAL [Concomitant]

REACTIONS (4)
  - HEADACHE [None]
  - LIP OEDEMA [None]
  - MALAISE [None]
  - NAUSEA [None]
